FAERS Safety Report 4855858-9 (Version None)
Quarter: 2005Q4

REPORT INFORMATION
  Report Type: 
  Country: None (occurrence: None)
  Receive Date: 20051215
  Receipt Date: 20051215
  Transmission Date: 20060501
  Serious: Yes (Hospitalization)
  Sender: FDA-Public Use
  Company Number: None

PATIENT
  Sex: Female

DRUGS (3)
  1. TAMOXIFEN [Suspect]
     Indication: BREAST CANCER
     Dosage: 20 MG DAILY PO
     Route: 048
     Dates: start: 20030515, end: 20051203
  2. CLONDRONATE [Suspect]
     Indication: BREAST CANCER
     Dosage: 1600 MG DAILY PO
     Route: 048
     Dates: start: 20030328, end: 20051203
  3. PLACEBO [Suspect]
     Indication: BREAST CANCER
     Dosage: 1600MG DAILY PO
     Route: 048
     Dates: start: 20030328, end: 20051203

REACTIONS (2)
  - CORONARY ARTERY OCCLUSION [None]
  - MYOCARDIAL INFARCTION [None]
